FAERS Safety Report 4645418-7 (Version None)
Quarter: 2005Q2

REPORT INFORMATION
  Report Type: 
  Country: None (occurrence: None)
  Receive Date: 20050425
  Receipt Date: 20050412
  Transmission Date: 20051028
  Serious: Yes (Death)
  Sender: FDA-Public Use
  Company Number: 2005059295

PATIENT

DRUGS (1)
  1. METRONIDAZOLE [Suspect]
     Indication: POSTOPERATIVE CARE

REACTIONS (3)
  - CLOSTRIDIUM COLITIS [None]
  - INTESTINAL OBSTRUCTION [None]
  - POST PROCEDURAL COMPLICATION [None]
